FAERS Safety Report 5002627-5 (Version None)
Quarter: 2006Q2

REPORT INFORMATION
  Report Type: 
  Country: None (occurrence: None)
  Receive Date: 20060510
  Receipt Date: 20060502
  Transmission Date: 20061013
  Serious: Yes (Other)
  Sender: FDA-Public Use
  Company Number: GXKR2006GB02486

PATIENT
  Age: 81 Year
  Sex: Male
  Weight: 73.5 kg

DRUGS (6)
  1. WARFARIN SODIUM [Suspect]
     Indication: ATRIAL FIBRILLATION
     Dosage: 30 MG, QD, ORAL
     Route: 048
     Dates: start: 19960101
  2. FUROSEMIDE [Suspect]
     Indication: OEDEMA PERIPHERAL
     Dosage: SEE IMAGE
     Route: 048
     Dates: start: 20060308
  3. ENALAPRIL MALEATE [Concomitant]
  4. METFORMIN [Concomitant]
  5. SOTALOL HCL [Concomitant]
  6. AMLODIPINE [Concomitant]

REACTIONS (2)
  - DRUG INTERACTION [None]
  - INTERNATIONAL NORMALISED RATIO INCREASED [None]
